FAERS Safety Report 7232537-4 (Version None)
Quarter: 2011Q1

REPORT INFORMATION
  Report Type: 
  Country: None (occurrence: None)
  Receive Date: 20110119
  Receipt Date: 20110112
  Transmission Date: 20110831
  Serious: Yes (Other)
  Sender: FDA-Public Use
  Company Number: DE-AMGEN-DEUCT2011002450

PATIENT

DRUGS (10)
  1. ACETAMINOPHEN [Concomitant]
     Indication: RHEUMATOID ARTHRITIS
     Dosage: 500 MG, AS NEEDED
     Dates: start: 20060301
  2. ETANERCEPT [Suspect]
     Indication: RHEUMATOID ARTHRITIS
     Dosage: 50MG, QWK
     Dates: start: 20100816, end: 20101010
  3. METEX [Suspect]
     Indication: RHEUMATOID ARTHRITIS
     Dosage: 10 MG, WEEKLY
     Dates: start: 20100401, end: 20100901
  4. FOLIC ACID [Concomitant]
     Dosage: 5 MG, WEEKLY
     Dates: start: 20100401
  5. CALCIUM CITRATE/COLECALCIFEROL [Concomitant]
     Indication: OSTEOPOROSIS PROPHYLAXIS
     Dosage: 600 MG, 2X/DAY
     Dates: start: 20100301
  6. METEX [Suspect]
     Dosage: 5 MG, WEEKLY
     Dates: start: 20100901
  7. DEKRISTOL [Concomitant]
     Indication: OSTEOPOROSIS PROPHYLAXIS
     Dosage: 20000 IU, MONTHLY
     Dates: start: 20091201
  8. FOLIC ACID [Concomitant]
     Indication: RHEUMATOID ARTHRITIS
     Dosage: 5 MG, WEEKLY
     Dates: start: 20100401
  9. ARCOXIA [Concomitant]
     Indication: RHEUMATOID ARTHRITIS
     Dosage: 90 MG, AS NEEDED
     Dates: start: 20070501
  10. PREDNISOLONE [Concomitant]
     Indication: RHEUMATOID ARTHRITIS
     Dosage: 7.5 MG, 1X/DAY
     Dates: start: 20041101

REACTIONS (1)
  - PULMONARY FIBROSIS [None]
